FAERS Safety Report 6601742-X (Version None)
Quarter: 2010Q1

REPORT INFORMATION
  Report Type: 
  Country: None (occurrence: None)
  Receive Date: 20100225
  Receipt Date: 20081201
  Transmission Date: 20100710
  Serious: Yes (Other)
  Sender: FDA-Public Use
  Company Number: US-BRISTOL-MYERS SQUIBB COMPANY-14424725

PATIENT
  Sex: Female

DRUGS (2)
  1. ORENCIA [Suspect]
     Dosage: 5TH DOSE ON 08OCT08, 6TH DOSE ON 07NOV08.
     Route: 042
  2. REMICADE [Concomitant]

REACTIONS (4)
  - FLUSHING [None]
  - HYPOTENSION [None]
  - NAUSEA [None]
  - URTICARIA [None]
